FAERS Safety Report 7118432-X (Version None)
Quarter: 2010Q4

REPORT INFORMATION
  Report Type: 
  Country: None (occurrence: None)
  Receive Date: 20101123
  Receipt Date: 20101119
  Transmission Date: 20110411
  Serious: Yes (Death)
  Sender: FDA-Public Use
  Company Number: JP-ASTRAZENECA-2010SE55130

PATIENT
  Age: 88 Year
  Sex: Male

DRUGS (3)
  1. CASODEX [Suspect]
     Indication: PROSTATE CANCER
     Route: 048
  2. VASOLAN [Concomitant]
     Dosage: DOSE UNKNOWN
     Route: 065
     Dates: start: 20100815
  3. GRANDAXIN [Concomitant]
     Dosage: DOSE UNKNOWN
     Route: 065
     Dates: start: 20100815

REACTIONS (2)
  - ACUTE CORONARY SYNDROME [None]
  - HEPATIC FUNCTION ABNORMAL [None]
